FAERS Safety Report 18278858 (Version 3)
Quarter: 2025Q2

REPORT INFORMATION
  Report Type: Spontaneous
  Country: US (occurrence: US)
  Receive Date: 20200917
  Receipt Date: 20250521
  Transmission Date: 20250717
  Serious: Yes (Hospitalization)
  Sender: VERTEX
  Company Number: US-VERTEX PHARMACEUTICALS-2020-018398

PATIENT
  Sex: Male
  Weight: 64 kg

DRUGS (11)
  1. TRIKAFTA [Suspect]
     Active Substance: ELEXACAFTOR\IVACAFTOR\TEZACAFTOR
     Indication: Cystic fibrosis
     Dosage: 2 TABS (100 MG ELEXACAFTOR/ 50 MG TEZACAFTOR/ 75 MG IVACAFTOR) AM; 1 TAB (150MG IVACAFTOR) PM
     Route: 048
     Dates: start: 202002
  2. PULMOZYME [Concomitant]
     Active Substance: DORNASE ALFA
  3. PULMOZYME [Concomitant]
     Active Substance: DORNASE ALFA
  4. AZITHROMYCIN [Concomitant]
     Active Substance: AZITHROMYCIN
  5. VITAMIN D3 [Concomitant]
     Active Substance: CHOLECALCIFEROL
  6. Proair Bronquial [Concomitant]
  7. EPIPEN [Concomitant]
     Active Substance: EPINEPHRINE
  8. CREON [Concomitant]
     Active Substance: PANCRELIPASE AMYLASE\PANCRELIPASE LIPASE\PANCRELIPASE PROTEASE
  9. SINGULAIR [Concomitant]
     Active Substance: MONTELUKAST SODIUM
  10. ONDANSETRON [Concomitant]
     Active Substance: ONDANSETRON
  11. ARNUITY ELLIPTA [Concomitant]
     Active Substance: FLUTICASONE FUROATE

REACTIONS (1)
  - Ligament rupture [Unknown]

NARRATIVE: CASE EVENT DATE: 20200101
